FAERS Safety Report 4796683-7 (Version None)
Quarter: 2005Q3

REPORT INFORMATION
  Report Type: 
  Country: None (occurrence: None)
  Receive Date: 20050916
  Receipt Date: 20050201
  Transmission Date: 20060218
  Serious: Yes (Hospitalization, Other)
  Sender: FDA-Public Use
  Company Number: US-JNJFOC-20041104981

PATIENT
  Age: 26 Year
  Sex: Female
  Weight: 60.3284 kg

DRUGS (3)
  1. TOPAMAX [Suspect]
     Indication: MIGRAINE
     Dosage: 50 MG, 2 IN 1 DAY, ORAL
     Route: 048
     Dates: start: 20040727, end: 20041001
  2. AXERT [Concomitant]
  3. ORAL CONTRACEPTIVE () ORAL CONTRACEPTIVE NOS [Concomitant]

REACTIONS (2)
  - NEPHROLITHIASIS [None]
  - POSTOPERATIVE INFECTION [None]
